FAERS Safety Report 10170958 (Version 1)
Quarter: 2014Q2

REPORT INFORMATION
  Report Type: Spontaneous
  Country: US (occurrence: None)
  Receive Date: 20140513
  Receipt Date: 20140513
  Transmission Date: 20141212
  Serious: No
  Sender: FDA-Public Use
  Company Number: None

PATIENT
  Age: 56 Year
  Sex: Female

DRUGS (2)
  1. ENOXAPARIN [Suspect]
     Indication: PULMONARY EMBOLISM
     Route: 058
     Dates: start: 20140411, end: 20140506
  2. ENOXAPARIN [Suspect]
     Indication: PULMONARY INFARCTION
     Route: 058
     Dates: start: 20140411, end: 20140506

REACTIONS (2)
  - Thrombosis [None]
  - Blood viscosity decreased [None]
